FAERS Safety Report 8763393 (Version 1)
Quarter: 2012Q4

REPORT INFORMATION
  Report Type: 
  Country: RU (occurrence: RU)
  Receive Date: 20120830
  Receipt Date: 20120830
  Transmission Date: 20130627
  Serious: Yes (Other)
  Sender: FDA-Public Use
  Company Number: RU-ELI_LILLY_AND_COMPANY-RU201208007357

PATIENT
  Age: 64 Year
  Sex: Female

DRUGS (4)
  1. HUMULIN N [Suspect]
     Dosage: UNK, unknown
  2. HUMULIN R [Suspect]
     Dosage: UNK, unknown
  3. LORISTA [Concomitant]
     Dosage: UNK, unknown
     Route: 048
  4. INDAPAMID [Concomitant]
     Dosage: UNK, unknown
     Route: 048

REACTIONS (4)
  - Loss of consciousness [Recovering/Resolving]
  - Pruritus [Recovering/Resolving]
  - Dyspnoea [Recovering/Resolving]
  - Dizziness [Recovering/Resolving]
